FAERS Safety Report 4489078-7 (Version None)
Quarter: 2004Q4

REPORT INFORMATION
  Report Type: 
  Country: None (occurrence: None)
  Receive Date: 20041029
  Receipt Date: 20041018
  Transmission Date: 20050328
  Serious: Yes (Hospitalization)
  Sender: FDA-Public Use
  Company Number: DE-MERCK-0410DEU00533

PATIENT
  Age: 66 Year
  Sex: Male

DRUGS (2)
  1. VIOXX [Suspect]
     Indication: LOCALISED OSTEOARTHRITIS
     Route: 048
     Dates: start: 20020101
  2. VIOXX [Suspect]
     Route: 048
     Dates: start: 20020101

REACTIONS (6)
  - APHASIA [None]
  - CEREBROVASCULAR ACCIDENT [None]
  - LOCALISED OSTEOARTHRITIS [None]
  - SPEECH DISORDER [None]
  - SYNCOPE [None]
  - VOCAL CORD NEOPLASM [None]
